FAERS Safety Report 9168854 (Version 1)
Quarter: 2013Q1

REPORT INFORMATION
  Report Type: Spontaneous
  Country: HR (occurrence: None)
  Receive Date: 20130305
  Receipt Date: 20130305
  Transmission Date: 20140127
  Serious: Yes (Hospitalization, Disabling)
  Sender: FDA-Public Use
  Company Number: 2013/046

PATIENT
  Age: 70 Year
  Sex: Male

DRUGS (2)
  1. MEMANTINE [Suspect]
     Indication: DEMENTIA ALZHEIMER^S TYPE
  2. FLUVOXAMINE [Concomitant]

REACTIONS (9)
  - Loss of consciousness [None]
  - Fall [None]
  - Radius fracture [None]
  - Hypotonia [None]
  - Confusional state [None]
  - Electroencephalogram abnormal [None]
  - Cerebral atrophy [None]
  - Cognitive disorder [None]
  - Blood cholesterol increased [None]
